FAERS Safety Report 7479539-0 (Version None)
Quarter: 2011Q2

REPORT INFORMATION
  Report Type: 
  Country: None (occurrence: None)
  Receive Date: 20110513
  Receipt Date: 20110504
  Transmission Date: 20111010
  Serious: Yes (Hospitalization)
  Sender: FDA-Public Use
  Company Number: DE-ASTRAZENECA-2011SE26152

PATIENT
  Sex: Male
  Weight: 86 kg

DRUGS (5)
  1. ATACAND [Suspect]
     Route: 048
  2. CLINDAMYCIN [Suspect]
     Dosage: 300
  3. PANTOPRAZOLE [Suspect]
  4. BISOPROLOL FUMARATE [Suspect]
  5. METOPROLOL SUCCINATE [Suspect]

REACTIONS (2)
  - SWOLLEN TONGUE [None]
  - LIVER DISORDER [None]
